FAERS Safety Report 4466868-8 (Version None)
Quarter: 2004Q3

REPORT INFORMATION
  Report Type: 
  Country: None (occurrence: None)
  Receive Date: 20040928
  Receipt Date: 20040928
  Transmission Date: 20050211
  Serious: Yes (Hospitalization)
  Sender: FDA-Public Use
  Company Number: None

PATIENT
  Age: 37 Year
  Sex: Female
  Weight: 53.8 kg

DRUGS (2)
  1. EPIRUBICIN [Suspect]
     Indication: BREAST CANCER
     Dosage: 188 MG IVP
     Route: 042
     Dates: start: 20040920
  2. DECADRON [Concomitant]

REACTIONS (3)
  - PAIN [None]
  - PYREXIA [None]
  - THERAPY NON-RESPONDER [None]
